FAERS Safety Report 7808396-5 (Version None)
Quarter: 2011Q4

REPORT INFORMATION
  Report Type: 
  Country: None (occurrence: None)
  Receive Date: 20111007
  Receipt Date: 20110923
  Transmission Date: 20120403
  Serious: Yes (Other)
  Sender: FDA-Public Use
  Company Number: 2011-3877

PATIENT
  Age: 30 Year
  Sex: Male
  Weight: 106 kg

DRUGS (4)
  1. SOMAVERT [Concomitant]
  2. SOMATULINE DEPOT [Suspect]
     Indication: ACROMEGALY
     Dosage: 120 MG (120 MG, 1 IN 4 WK), SUBCUTANEOUS
     Route: 058
     Dates: start: 20091201
  3. LANTUS [Concomitant]
  4. NOVOLOG [Concomitant]

REACTIONS (1)
  - INJECTION SITE ABSCESS [None]
